FAERS Safety Report 13359230 (Version 2)
Quarter: 2017Q1

REPORT INFORMATION
  Report Type: Spontaneous
  Country: BG (occurrence: BG)
  Receive Date: 20170322
  Receipt Date: 20170327
  Transmission Date: 20170429
  Serious: Yes (Hospitalization)
  Sender: FDA-Public Use
  Company Number: BG-SA-2017SA042018

PATIENT
  Age: 71 Year
  Sex: Male

DRUGS (2)
  1. ZALTRAP [Suspect]
     Active Substance: ZIV-AFLIBERCEPT
     Indication: COLORECTAL CANCER
     Route: 042
  2. ZALTRAP [Suspect]
     Active Substance: ZIV-AFLIBERCEPT
     Indication: COLORECTAL CANCER
     Route: 042

REACTIONS (2)
  - Urinary incontinence [Unknown]
  - Mental disorder [Not Recovered/Not Resolved]
